FAERS Safety Report 4407344-8 (Version None)
Quarter: 2004Q3

REPORT INFORMATION
  Report Type: 
  Country: None (occurrence: None)
  Receive Date: 20040721
  Receipt Date: 20040123
  Transmission Date: 20050211
  Serious: Yes (Hospitalization)
  Sender: FDA-Public Use
  Company Number: CA_040106590

PATIENT
  Sex: Female

DRUGS (3)
  1. GEMZAR [Suspect]
     Indication: BREAST CANCER METASTATIC
     Dates: start: 20031201
  2. CARBOPLATIN [Suspect]
     Indication: BREAST CANCER METASTATIC
  3. NIFEDIPINE [Concomitant]

REACTIONS (1)
  - PERIPHERAL ISCHAEMIA [None]
